FAERS Safety Report 23555585 (Version 1)
Quarter: 2024Q1

REPORT INFORMATION
  Report Type: Spontaneous
  Country: US (occurrence: US)
  Receive Date: 20240222
  Receipt Date: 20240222
  Transmission Date: 20240409
  Serious: Yes (Hospitalization)
  Sender: FDA-Public Use
  Company Number: US-LANTHEUS-LMI-2023-00671

PATIENT
  Age: 57 Year
  Sex: Male
  Weight: 62 kg

DRUGS (1)
  1. DEFINITY [Suspect]
     Active Substance: PERFLUTREN
     Indication: Echocardiogram
     Dosage: 1.2 MILLILITRE (1.3 ML DEFINITY PREPARED IN 8.7 ML NS)
     Route: 042
     Dates: start: 20230526, end: 20230526

REACTIONS (4)
  - Syncope [Recovered/Resolved]
  - Seizure [Recovered/Resolved]
  - Blood pressure abnormal [Recovered/Resolved]
  - Cough [Recovered/Resolved]

NARRATIVE: CASE EVENT DATE: 20230526
